FAERS Safety Report 15474343 (Version 1)
Quarter: 2018Q4

REPORT INFORMATION
  Report Type: Report from Study
  Country: US (occurrence: US)
  Receive Date: 20181008
  Receipt Date: 20181008
  Transmission Date: 20190205
  Serious: Yes (Hospitalization)
  Sender: FDA-Public Use
  Company Number: US-EXELIXIS-XL18418015288

PATIENT
  Age: 23 Year
  Sex: Male

DRUGS (2)
  1. XL184 [Suspect]
     Active Substance: CABOZANTINIB
     Indication: NEUROECTODERMAL NEOPLASM
  2. XL184 [Suspect]
     Active Substance: CABOZANTINIB
     Indication: EWING^S SARCOMA
     Dosage: 40 MG/M2, QD
     Route: 048
     Dates: start: 20171003

REACTIONS (2)
  - Lung infection [Unknown]
  - Hypoxia [Unknown]

NARRATIVE: CASE EVENT DATE: 20180419
